FAERS Safety Report 7672668-8 (Version None)
Quarter: 2011Q3

REPORT INFORMATION
  Report Type: 
  Country: None (occurrence: None)
  Receive Date: 20110809
  Receipt Date: 20110727
  Transmission Date: 20111222
  Serious: No
  Sender: FDA-Public Use
  Company Number: US-B.I. PHARMACEUTICALS,INC./RIDGEFIELD-2011-BP-18592BP

PATIENT
  Sex: Female

DRUGS (7)
  1. LISINOPRIL [Concomitant]
     Indication: HYPERTENSION
     Dosage: 20 MG
     Route: 048
  2. PRADAXA [Suspect]
     Indication: THROMBOSIS
     Dosage: 150 MG
     Route: 048
     Dates: start: 20110714, end: 20110726
  3. LIPITOR [Concomitant]
     Indication: BLOOD CHOLESTEROL INCREASED
     Dosage: 80 MG
     Route: 048
  4. PROCARDIA [Concomitant]
     Indication: HYPERTENSION
     Dosage: 60 MG
     Route: 048
  5. ATENOLOL [Concomitant]
     Indication: HYPERTENSION
     Dosage: 50 MG
     Route: 048
  6. CLONIDINE [Concomitant]
     Indication: HYPERTENSION
     Dosage: 0.2 MG
     Route: 048
  7. PRADAXA [Suspect]
     Indication: PERIPHERAL VASCULAR DISORDER

REACTIONS (4)
  - SENSATION OF FOREIGN BODY [None]
  - CHEST PAIN [None]
  - ABDOMINAL DISCOMFORT [None]
  - COUGH [None]
